FAERS Safety Report 10185895 (Version 2)
Quarter: 2014Q2

REPORT INFORMATION
  Report Type: Spontaneous
  Country: US (occurrence: US)
  Receive Date: 20140521
  Receipt Date: 20140612
  Transmission Date: 20141212
  Serious: Yes (Other)
  Sender: FDA-Public Use
  Company Number: US-BAYER-2014-070327

PATIENT
  Age: 61 Year
  Sex: Male
  Weight: 94.33 kg

DRUGS (14)
  1. BAYER ASPIRIN REGIMEN ADULT LOW STRENGTH [Suspect]
     Indication: ISCHAEMIC HEART DISEASE PROPHYLAXIS
     Dosage: 1 DF, QD
     Route: 048
     Dates: start: 1997
  2. BAYER GENUINE ASPIRIN ORIGINAL STRENGTH [Suspect]
     Indication: ISCHAEMIC HEART DISEASE PROPHYLAXIS
     Dosage: 1 DF, QD
     Route: 048
  3. PLAVIX [Concomitant]
  4. NIACIN [Concomitant]
  5. COREG [Concomitant]
  6. LOSARTAN [Concomitant]
  7. FUROSEMIDE [Concomitant]
  8. AMIODARONE [Concomitant]
  9. ISOSORBIDE MONONITRATE [Concomitant]
  10. INSPRA [Concomitant]
  11. RANEXA [Concomitant]
  12. ZETIA [Concomitant]
  13. POTASSIUM [Concomitant]
  14. CRESTOR [Concomitant]

REACTIONS (4)
  - Myocardial infarction [None]
  - Therapeutic response changed [None]
  - Incorrect drug administration duration [None]
  - Intentional product misuse [None]
